FAERS Safety Report 7631507-1 (Version None)
Quarter: 2011Q3

REPORT INFORMATION
  Report Type: 
  Country: None (occurrence: None)
  Receive Date: 20110715
  Receipt Date: 20110706
  Transmission Date: 20111222
  Serious: Yes (Death, Hospitalization)
  Sender: FDA-Public Use
  Company Number: 2011S1000040

PATIENT
  Age: 82 Year
  Sex: Male
  Weight: 68.0396 kg

DRUGS (9)
  1. DIPHENHYDRAMINE HCL [Concomitant]
  2. KRYSTEXXA [Suspect]
  3. KRYSTEXXA [Suspect]
     Indication: GOUT
     Dosage: X1; X1; X1; X1; X1
     Dates: start: 20110315, end: 20110315
  4. KRYSTEXXA [Suspect]
     Indication: GOUT
     Dosage: X1; X1; X1; X1; X1
     Dates: start: 20110331, end: 20110331
  5. KRYSTEXXA [Suspect]
     Indication: GOUT
     Dosage: X1; X1; X1; X1; X1
     Dates: start: 20110512, end: 20110512
  6. KRYSTEXXA [Suspect]
     Indication: GOUT
     Dosage: X1; X1; X1; X1; X1
     Dates: start: 20110414, end: 20110414
  7. KRYSTEXXA [Suspect]
     Indication: GOUT
     Dosage: X1; X1; X1; X1; X1
     Dates: start: 20110428, end: 20110428
  8. ACETAMINOPHEN [Concomitant]
  9. SOLU-MEDROL [Concomitant]

REACTIONS (1)
  - GOUT [None]
